FAERS Safety Report 16476032 (Version 1)
Quarter: 2019Q2

REPORT INFORMATION
  Report Type: Spontaneous
  Country: US (occurrence: US)
  Receive Date: 20190625
  Receipt Date: 20190625
  Transmission Date: 20190711
  Serious: No
  Sender: FDA-Public Use
  Company Number: US-BAUSCH-BL-2019-016844

PATIENT
  Sex: Female

DRUGS (1)
  1. JUBLIA [Suspect]
     Active Substance: EFINACONAZOLE
     Indication: FUNGAL INFECTION
     Dosage: APPLIED TOPICALLY TO HER TOES
     Route: 061
     Dates: start: 2017, end: 20190604

REACTIONS (7)
  - Erythema [Recovering/Resolving]
  - Tinea pedis [Recovering/Resolving]
  - Skin exfoliation [Recovering/Resolving]
  - Ulcer [Recovering/Resolving]
  - Product use issue [Unknown]
  - Blister [Recovering/Resolving]
  - Swelling [Recovering/Resolving]
